FAERS Safety Report 10570118 (Version 1)
Quarter: 2014Q4

REPORT INFORMATION
  Report Type: Spontaneous
  Country: TR (occurrence: None)
  Receive Date: 20141105
  Receipt Date: 20141105
  Transmission Date: 20150529
  Serious: Yes (Hospitalization)
  Sender: FDA-Public Use
  Company Number: IMP_08020_2014

PATIENT
  Age: 33 Year
  Sex: Female

DRUGS (2)
  1. DOXYCYCLINE. [Suspect]
     Active Substance: DOXYCYCLINE
     Indication: VAGINAL INFECTION
  2. ORNIDAZOLE [Suspect]
     Active Substance: ORNIDAZOLE
     Indication: VAGINAL INFECTION

REACTIONS (1)
  - Pancreatitis acute [None]
